FAERS Safety Report 4450984-0 (Version None)
Quarter: 2004Q3

REPORT INFORMATION
  Report Type: 
  Country: None (occurrence: None)
  Receive Date: 20040916
  Receipt Date: 20040304
  Transmission Date: 20050211
  Serious: Yes (Other)
  Sender: FDA-Public Use
  Company Number: US-BRISTOL-MYERS SQUIBB COMPANY-12523585

PATIENT
  Age: 35 Year
  Sex: Female

DRUGS (3)
  1. STADOL [Suspect]
     Dosage: DURATION: MORE THAN 6 MONTHS TO 3 YEARS
     Route: 030
     Dates: start: 19950101
  2. STADOL [Suspect]
     Dosage: DURATION: LESS THAN 6 MONTHS
     Route: 045
  3. LORCET-HD [Concomitant]
     Dates: start: 19950101

REACTIONS (2)
  - DEPENDENCE [None]
  - DRUG WITHDRAWAL SYNDROME [None]
